FAERS Safety Report 20440377 (Version 2)
Quarter: 2022Q1

REPORT INFORMATION
  Report Type: Spontaneous
  Country: None (occurrence: CA)
  Receive Date: 20220207
  Receipt Date: 20220208
  Transmission Date: 20220423
  Serious: Yes (Other)
  Sender: FDA-Public Use
  Company Number: CA-Ascend Therapeutics US, LLC-2124701

PATIENT
  Age: 55 Year
  Sex: Female

DRUGS (8)
  1. ESTROGEL [Suspect]
     Active Substance: ESTRADIOL
     Indication: Hot flush
     Route: 065
  2. ESTROGEL [Suspect]
     Active Substance: ESTRADIOL
  3. ESTROGEL [Suspect]
     Active Substance: ESTRADIOL
     Route: 065
  4. CELECOXIB [Concomitant]
     Active Substance: CELECOXIB
     Route: 065
  5. HYDROMORPHONE [Concomitant]
     Active Substance: HYDROMORPHONE
     Route: 065
  6. NEXIUM [Concomitant]
     Active Substance: ESOMEPRAZOLE MAGNESIUM
     Route: 065
  7. VALTREX [Concomitant]
     Active Substance: VALACYCLOVIR HYDROCHLORIDE
     Route: 065
  8. VITAMIN D3(COLECALCIFEROL) [Concomitant]
     Route: 065

REACTIONS (1)
  - Cholecystitis [Recovered/Resolved]
